FAERS Safety Report 20685109 (Version 6)
Quarter: 2022Q3

REPORT INFORMATION
  Report Type: Report from Study
  Country: CA (occurrence: CA)
  Receive Date: 20220407
  Receipt Date: 20220919
  Transmission Date: 20221027
  Serious: Yes (Hospitalization, Other)
  Sender: FDA-Public Use
  Company Number: CA-OTSUKA-2022_017025

PATIENT
  Age: 58 Year
  Sex: Female

DRUGS (1)
  1. CEDAZURIDINE\DECITABINE [Suspect]
     Active Substance: CEDAZURIDINE\DECITABINE
     Indication: Chronic myelomonocytic leukaemia
     Dosage: (35 MG DECITABINE AND 100 MG CEDAZURIDINE), 1 DF DAILY ON DAY 1-5 OF 28 DAYS CYCLE
     Route: 048
     Dates: start: 20220324, end: 20220913

REACTIONS (3)
  - Illness [Not Recovered/Not Resolved]
  - Stem cell transplant [Unknown]
  - Vomiting [Unknown]

NARRATIVE: CASE EVENT DATE: 20220324
